FAERS Safety Report 8076653-6 (Version None)
Quarter: 2012Q1

REPORT INFORMATION
  Report Type: 
  Country: None (occurrence: None)
  Receive Date: 20120127
  Receipt Date: 20120118
  Transmission Date: 20120608
  Serious: Yes (Hospitalization)
  Sender: FDA-Public Use
  Company Number: PHHY2012SI005297

PATIENT
  Age: 57 Year
  Sex: Male

DRUGS (16)
  1. LORAZEPAM [Suspect]
     Indication: HALLUCINATION, AUDITORY
     Dosage: 2.5 MG, TID
  2. DIAZEPAM [Concomitant]
  3. CARBAMAZEPINE [Concomitant]
  4. SULPIRIDE [Concomitant]
     Dosage: 400 MG, TID
  5. LORAZEPAM [Suspect]
     Indication: PSYCHOTIC DISORDER
     Dosage: 5 MG, TID
  6. RISPERIDONE [Suspect]
     Indication: HALLUCINATION, AUDITORY
  7. BIPERIDEN HYDROCHLORIDE TAB [Concomitant]
  8. RISPERIDONE [Suspect]
     Indication: DELUSION
  9. LORAZEPAM [Suspect]
     Indication: DELUSION
  10. PROMAZINE HYDROCHLORIDE [Concomitant]
     Dosage: 50 MG, TID
  11. PROMAZINE HYDROCHLORIDE [Concomitant]
     Dosage: 100 MG, TID
  12. OLANZAPINE [Concomitant]
  13. HALOPERIDOL [Concomitant]
     Dosage: 10 MG, TID
  14. BROMOCRIPTINE MESYLATE [Concomitant]
     Dosage: 5 MG, BID
  15. RISPERIDONE [Suspect]
     Indication: PSYCHOTIC DISORDER
     Dosage: 1 MG, BID
  16. CLONAZEPAM [Concomitant]

REACTIONS (16)
  - DISORIENTATION [None]
  - DYSPHAGIA [None]
  - SUICIDE ATTEMPT [None]
  - TREMOR [None]
  - URINARY RETENTION [None]
  - MOVEMENT DISORDER [None]
  - DYSTONIA [None]
  - NEUROLEPTIC MALIGNANT SYNDROME [None]
  - HYPERTONIA [None]
  - PLEUROTHOTONUS [None]
  - SALIVARY HYPERSECRETION [None]
  - DELUSION [None]
  - POSTURE ABNORMAL [None]
  - PYREXIA [None]
  - UNRESPONSIVE TO STIMULI [None]
  - ANXIETY [None]
